FAERS Safety Report 7119153-X (Version None)
Quarter: 2010Q4

REPORT INFORMATION
  Report Type: 
  Country: None (occurrence: None)
  Receive Date: 20101123
  Receipt Date: 20101115
  Transmission Date: 20110411
  Serious: Yes (Other)
  Sender: FDA-Public Use
  Company Number: AU-ROCHE-742265

PATIENT
  Sex: Female

DRUGS (7)
  1. ACTEMRA [Suspect]
     Indication: RHEUMATOID ARTHRITIS
     Route: 042
     Dates: start: 20080924
  2. METHOTREXATE [Concomitant]
     Indication: RHEUMATOID ARTHRITIS
     Route: 048
     Dates: start: 20080725
  3. FOLIC ACID [Concomitant]
     Dosage: 6 DAYS OUT OF 7
     Route: 048
     Dates: start: 20080725
  4. PRAVASTATIN [Concomitant]
  5. AVAPRO [Concomitant]
     Indication: HYPERTENSION
     Route: 048
  6. METOPROLOL [Concomitant]
     Indication: HYPERTENSION
     Dosage: 25 MFM DAILY
     Route: 048
  7. PANTOPRAZOLE [Concomitant]

REACTIONS (1)
  - PANCREATITIS [None]
